FAERS Safety Report 11493698 (Version 1)
Quarter: 2015Q3

REPORT INFORMATION
  Report Type: Spontaneous
  Country: US (occurrence: None)
  Receive Date: 20150910
  Receipt Date: 20150910
  Transmission Date: 20151125
  Serious: No
  Sender: FDA-Public Use
  Company Number: None

PATIENT
  Age: 38 Year
  Sex: Female

DRUGS (1)
  1. PULMOZYME [Suspect]
     Active Substance: DORNASE ALFA
     Indication: CYSTIC FIBROSIS
     Dosage: 2.5MG/2.5ML DAILY
     Route: 055
     Dates: start: 20141006

REACTIONS (2)
  - Cystic fibrosis [None]
  - Disease complication [None]

NARRATIVE: CASE EVENT DATE: 20150819
